FAERS Safety Report 19921186 (Version 2)
Quarter: 2022Q2

REPORT INFORMATION
  Report Type: Spontaneous
  Country: US (occurrence: None)
  Receive Date: 20211005
  Receipt Date: 20220425
  Transmission Date: 20220720
  Serious: Yes (Death, Hospitalization, Other)
  Sender: FDA-Public Use
  Company Number: 2021A756195

PATIENT
  Age: 73 Year
  Sex: Female
  Weight: 74.1 kg

DRUGS (52)
  1. NEXIUM [Suspect]
     Active Substance: ESOMEPRAZOLE MAGNESIUM
     Indication: Gastrooesophageal reflux disease
     Route: 048
     Dates: start: 2002, end: 2018
  2. NEXIUM [Suspect]
     Active Substance: ESOMEPRAZOLE MAGNESIUM
     Indication: Gastrooesophageal reflux disease
     Route: 048
     Dates: start: 2002, end: 2018
  3. NEXIUM [Suspect]
     Active Substance: ESOMEPRAZOLE MAGNESIUM
     Indication: Gastrooesophageal reflux disease
     Dosage: GENERIC
     Route: 065
     Dates: start: 20130419, end: 201711
  4. NEXIUM 24HR [Suspect]
     Active Substance: ESOMEPRAZOLE MAGNESIUM
     Indication: Gastrooesophageal reflux disease
     Route: 048
     Dates: start: 2002, end: 2018
  5. NEXIUM 24HR [Suspect]
     Active Substance: ESOMEPRAZOLE MAGNESIUM
     Indication: Gastrooesophageal reflux disease
     Route: 048
     Dates: start: 2014, end: 2018
  6. PRILOSEC [Suspect]
     Active Substance: OMEPRAZOLE MAGNESIUM
     Indication: Gastrooesophageal reflux disease
     Route: 048
     Dates: start: 2002, end: 2018
  7. PRILOSEC [Suspect]
     Active Substance: OMEPRAZOLE MAGNESIUM
     Indication: Gastrooesophageal reflux disease
     Route: 048
     Dates: start: 2002, end: 2018
  8. PROTONIX [Suspect]
     Active Substance: PANTOPRAZOLE SODIUM
     Indication: Gastrooesophageal reflux disease
     Route: 065
     Dates: start: 2002, end: 2018
  9. PROTONIX [Suspect]
     Active Substance: PANTOPRAZOLE SODIUM
     Indication: Gastrooesophageal reflux disease
     Dosage: GENERIC
     Route: 065
     Dates: start: 20130419, end: 20180326
  10. AMOXICILLIN [Concomitant]
     Active Substance: AMOXICILLIN
     Indication: Infection
     Dates: start: 20060210
  11. COZAAR [Concomitant]
     Active Substance: LOSARTAN POTASSIUM
     Indication: Hypertension
     Dates: start: 20060119, end: 20061017
  12. COZAAR [Concomitant]
     Active Substance: LOSARTAN POTASSIUM
     Indication: Hypertension
     Dates: start: 20090413
  13. COZAAR [Concomitant]
     Active Substance: LOSARTAN POTASSIUM
     Indication: Hypertension
     Dates: start: 20091009
  14. COZAAR [Concomitant]
     Active Substance: LOSARTAN POTASSIUM
     Indication: Hypertension
     Dates: start: 20100408
  15. COZAAR [Concomitant]
     Active Substance: LOSARTAN POTASSIUM
     Indication: Hypertension
     Dates: start: 20180215
  16. SIMVASTATIN [Concomitant]
     Active Substance: SIMVASTATIN
     Indication: Blood cholesterol increased
     Dates: start: 20060922, end: 20070213
  17. SIMVASTATIN [Concomitant]
     Active Substance: SIMVASTATIN
     Indication: Blood cholesterol increased
     Dates: start: 20080627
  18. SIMVASTATIN [Concomitant]
     Active Substance: SIMVASTATIN
     Indication: Blood cholesterol increased
     Dates: start: 20081013
  19. SIMVASTATIN [Concomitant]
     Active Substance: SIMVASTATIN
     Indication: Blood cholesterol increased
     Dates: start: 20101027
  20. FUROSEMIDE [Concomitant]
     Active Substance: FUROSEMIDE
     Indication: Fluid retention
     Dates: start: 20180303
  21. FUROSEMIDE [Concomitant]
     Active Substance: FUROSEMIDE
     Indication: Fluid retention
     Dates: start: 20180215
  22. SPIRONOLACTONE [Concomitant]
     Active Substance: SPIRONOLACTONE
     Dates: start: 20180202, end: 20180309
  23. TYLENOL [Concomitant]
     Active Substance: ACETAMINOPHEN
     Indication: Headache
     Dates: start: 20180326, end: 20180329
  24. TYLENOL [Concomitant]
     Active Substance: ACETAMINOPHEN
     Indication: Pyrexia
     Dates: start: 20180326, end: 20180329
  25. ASPIRIN [Concomitant]
     Active Substance: ASPIRIN
     Indication: Pain
     Dates: start: 20180327, end: 20180329
  26. ASPIRIN [Concomitant]
     Active Substance: ASPIRIN
     Indication: Hypertension
     Dates: start: 20180327, end: 20180329
  27. RANITIDINE [Concomitant]
     Active Substance: RANITIDINE
     Dates: start: 20060119, end: 20180329
  28. NYSTATIN [Concomitant]
     Active Substance: NYSTATIN
     Dates: start: 20060119, end: 20180329
  29. HYDRALAZINE [Concomitant]
     Active Substance: HYDRALAZINE HYDROCHLORIDE
     Dates: start: 20060119, end: 20180329
  30. TERBINAFINE [Concomitant]
     Active Substance: TERBINAFINE
     Dates: start: 20060119, end: 20180329
  31. ISOSORBIDE MONONITRATE [Concomitant]
     Active Substance: ISOSORBIDE MONONITRATE
     Dates: start: 20060119, end: 20180329
  32. CARVEDILOL [Concomitant]
     Active Substance: CARVEDILOL
     Dates: start: 20060119, end: 20180329
  33. ZETIA [Concomitant]
     Active Substance: EZETIMIBE
     Dates: start: 20060119, end: 20180329
  34. METOPROLOL [Concomitant]
     Active Substance: METOPROLOL
     Dates: start: 20060119, end: 20180329
  35. INDAPAMIDE [Concomitant]
     Active Substance: INDAPAMIDE
     Dates: start: 20060119, end: 20180329
  36. LOZOL [Concomitant]
     Active Substance: INDAPAMIDE
     Dates: start: 20060119, end: 20180329
  37. BUSPIRONE [Concomitant]
     Active Substance: BUSPIRONE HYDROCHLORIDE
     Dates: start: 20060119, end: 20180329
  38. NIASPAN [Concomitant]
     Active Substance: NIACIN
     Dates: start: 20060119, end: 20180329
  39. LOSARTAN [Concomitant]
     Active Substance: LOSARTAN
     Dates: start: 20060119, end: 20180329
  40. DICLOFENAC [Concomitant]
     Active Substance: DICLOFENAC
     Dates: start: 20060119, end: 20180329
  41. CIPROFLOXACIN [Concomitant]
     Active Substance: CIPROFLOXACIN
     Dates: start: 20060119, end: 20180329
  42. ONDANSETRON [Concomitant]
     Active Substance: ONDANSETRON
     Dates: start: 20060119, end: 20180329
  43. TRICOR [Concomitant]
     Active Substance: FENOFIBRATE
     Dates: start: 20060119, end: 20180329
  44. FENOFIBRATE [Concomitant]
     Active Substance: FENOFIBRATE
     Dates: start: 20060119, end: 20180329
  45. HYDROCODONE [Concomitant]
     Active Substance: HYDROCODONE
     Dates: start: 20060119, end: 20180329
  46. TIZANIDINE [Concomitant]
     Active Substance: TIZANIDINE
     Dates: start: 20060119, end: 20180329
  47. METFORMIN [Concomitant]
     Active Substance: METFORMIN HYDROCHLORIDE
     Dates: start: 20060119, end: 20180329
  48. ATORVASTATIN [Concomitant]
     Active Substance: ATORVASTATIN
     Dates: start: 20060119, end: 20180329
  49. ALENDRONATE [Concomitant]
     Active Substance: ALENDRONATE SODIUM
     Dates: start: 20060119, end: 20180329
  50. GLIPIZIDE [Concomitant]
     Active Substance: GLIPIZIDE
     Dates: start: 20060119, end: 20180329
  51. ACETIC ACID\TRIAMCINOLONE [Concomitant]
     Active Substance: ACETIC ACID\TRIAMCINOLONE
     Dates: start: 20060119, end: 20180329
  52. ACETYLSALICYLIC ACID/ISOSORBIDE MONONITRATE/GLYCEROL [Concomitant]
     Dates: start: 20060119, end: 20180329

REACTIONS (5)
  - Chronic kidney disease [Unknown]
  - Acute kidney injury [Unknown]
  - Aortic stenosis [Fatal]
  - Mitral valve incompetence [Fatal]
  - Colitis ischaemic [Fatal]

NARRATIVE: CASE EVENT DATE: 20130101
